FAERS Safety Report 8415882-6 (Version None)
Quarter: 2012Q2

REPORT INFORMATION
  Report Type: 
  Country: None (occurrence: None)
  Receive Date: 20120606
  Receipt Date: 20120601
  Transmission Date: 20120825
  Serious: Yes (Death, Disabling, Other)
  Sender: FDA-Public Use
  Company Number: US-BAYER-2012-055520

PATIENT
  Age: 50 Year
  Sex: Female

DRUGS (3)
  1. MAGNEVIST [Suspect]
     Indication: NUCLEAR MAGNETIC RESONANCE IMAGING
     Dosage: UNK
     Dates: start: 20030807, end: 20030807
  2. MAGNEVIST [Suspect]
     Dosage: UNK
     Dates: start: 20040203, end: 20040203
  3. MAGNEVIST [Suspect]
     Dosage: UNK
     Dates: start: 20030812, end: 20030812

REACTIONS (5)
  - ANXIETY [None]
  - INJURY [None]
  - NEPHROGENIC SYSTEMIC FIBROSIS [None]
  - EMOTIONAL DISTRESS [None]
  - PAIN [None]
